FAERS Safety Report 16209064 (Version 1)
Quarter: 2019Q2

REPORT INFORMATION
  Report Type: Report from Study
  Country: None (occurrence: CO)
  Receive Date: 20190417
  Receipt Date: 20190417
  Transmission Date: 20190711
  Serious: Yes (Death, Life-Threatening, Hospitalization)
  Sender: FDA-Public Use
  Company Number: CO-ABBVIE-19S-036-2747395-00

PATIENT
  Age: 78 Year
  Sex: Male
  Weight: 57 kg

DRUGS (1)
  1. ZEMPLAR [Suspect]
     Active Substance: PARICALCITOL
     Indication: HYPERPARATHYROIDISM SECONDARY
     Dosage: FREQUENCY: POST-DIALYSIS
     Route: 042
     Dates: start: 20180427, end: 20190212

REACTIONS (3)
  - Cardio-respiratory arrest [Not Recovered/Not Resolved]
  - Myocardial infarction [Fatal]
  - Cardiac failure [Recovering/Resolving]

NARRATIVE: CASE EVENT DATE: 20190329
